FAERS Safety Report 16043041 (Version 1)
Quarter: 2019Q1

REPORT INFORMATION
  Report Type: Report from Study
  Country: US (occurrence: US)
  Receive Date: 20190306
  Receipt Date: 20190306
  Transmission Date: 20190418
  Serious: Yes (Other)
  Sender: FDA-Public Use
  Company Number: US-SA-2019SA062203

PATIENT
  Age: 51 Year
  Sex: Female

DRUGS (1)
  1. LIXISENATIDE [Suspect]
     Active Substance: LIXISENATIDE
     Dosage: 10 U, UNK
     Dates: start: 20190222

REACTIONS (1)
  - Sinobronchitis [Unknown]

NARRATIVE: CASE EVENT DATE: 20190222
